FAERS Safety Report 25773919 (Version 2)
Quarter: 2025Q3

REPORT INFORMATION
  Report Type: Report from Study
  Country: JP (occurrence: JP)
  Receive Date: 20250908
  Receipt Date: 20250919
  Transmission Date: 20251020
  Serious: Yes (Other)
  Sender: ELI LILLY AND COMPANY
  Company Number: JP-ELI_LILLY_AND_COMPANY-JP202509002004

PATIENT
  Age: 76 Year
  Sex: Female
  Weight: 58 kg

DRUGS (3)
  1. KISUNLA [Suspect]
     Active Substance: DONANEMAB-AZBT
     Indication: Cognitive disorder
     Route: 041
     Dates: start: 20250708
  2. DONEPEZIL [Concomitant]
     Active Substance: DONEPEZIL
  3. BIOFERMIN [BIFIDOBACTERIUM BIFIDUM] [Concomitant]

REACTIONS (1)
  - Anaphylactic reaction [Recovered/Resolved]
